FAERS Safety Report 7957920-0 (Version None)
Quarter: 2011Q4

REPORT INFORMATION
  Report Type: 
  Country: None (occurrence: None)
  Receive Date: 20111205
  Receipt Date: 20111127
  Transmission Date: 20120403
  Serious: Yes (Hospitalization)
  Sender: FDA-Public Use
  Company Number: US-ABBOTT-11P-163-0879066-00

PATIENT
  Age: 79 Year
  Sex: Male

DRUGS (7)
  1. HUMIRA [Suspect]
     Indication: CROHN'S DISEASE
     Dates: start: 20110114
  2. XANAX [Concomitant]
     Indication: ANXIETY
     Dosage: AT BEDTIME AS NEEDED
  3. ACETAMINOPHEN [Concomitant]
     Indication: PAIN
  4. IMMODIUM OTC [Concomitant]
     Indication: PRODUCT USED FOR UNKNOWN INDICATION
  5. MEGACE [Concomitant]
     Indication: DECREASED APPETITE
  6. VITAMIN B-12 [Concomitant]
     Indication: PRODUCT USED FOR UNKNOWN INDICATION
     Dosage: MONTHLY
     Route: 050
  7. LOPRESSOR [Concomitant]
     Indication: BLOOD PRESSURE

REACTIONS (5)
  - LACERATION [None]
  - FALL [None]
  - DEHYDRATION [None]
  - LOSS OF CONSCIOUSNESS [None]
  - EXCORIATION [None]
